FAERS Safety Report 5008437-7 (Version None)
Quarter: 2006Q2

REPORT INFORMATION
  Report Type: 
  Country: None (occurrence: None)
  Receive Date: 20060523
  Receipt Date: 20060516
  Transmission Date: 20061013
  Serious: Yes (Other)
  Sender: FDA-Public Use
  Company Number: GB-JNJFOC-20060503564

PATIENT
  Age: 49 Year
  Sex: Female

DRUGS (4)
  1. REMICADE [Suspect]
     Indication: ANKYLOSING SPONDYLITIS
     Route: 042
  2. PHENYLBUTAZONE [Concomitant]
     Indication: ANKYLOSING SPONDYLITIS
     Route: 048
  3. DF118 [Concomitant]
     Indication: ANKYLOSING SPONDYLITIS
     Route: 065
  4. OMEPRAZOLE [Concomitant]
     Indication: DYSPEPSIA
     Route: 048

REACTIONS (1)
  - RENAL CELL CARCINOMA STAGE UNSPECIFIED [None]
